FAERS Safety Report 23054493 (Version 4)
Quarter: 2023Q4

REPORT INFORMATION
  Report Type: Spontaneous
  Country: US (occurrence: US)
  Receive Date: 20231011
  Receipt Date: 20231219
  Transmission Date: 20240110
  Serious: Yes (Hospitalization)
  Sender: FDA-Public Use
  Company Number: US-PFIZER INC-PV202300168060

PATIENT
  Age: 40 Year
  Sex: Female

DRUGS (1)
  1. IBRANCE [Suspect]
     Active Substance: PALBOCICLIB
     Dosage: 100 MG

REACTIONS (6)
  - Pneumonia [Unknown]
  - Thyroid disorder [Unknown]
  - Neoplasm progression [Unknown]
  - Weight decreased [Not Recovered/Not Resolved]
  - Mobility decreased [Unknown]
  - Wrong technique in product usage process [Unknown]
